FAERS Safety Report 11863990 (Version 2)
Quarter: 2016Q1

REPORT INFORMATION
  Report Type: Spontaneous
  Country: PL (occurrence: PL)
  Receive Date: 20151223
  Receipt Date: 20160301
  Transmission Date: 20160526
  Serious: Yes (Other)
  Sender: FDA-Public Use
  Company Number: PL-GLAXOSMITHKLINE-PL2015GSK154957

PATIENT
  Age: 34 Year
  Sex: Male

DRUGS (1)
  1. LAMITRIN [Suspect]
     Active Substance: LAMOTRIGINE
     Indication: PRODUCT USED FOR UNKNOWN INDICATION
     Dosage: 800 MG, QD

REACTIONS (5)
  - Dependence [Unknown]
  - Thinking abnormal [Unknown]
  - Foreign body sensation in eyes [Unknown]
  - Overdose [Unknown]
  - Rash macular [Unknown]
